FAERS Safety Report 8762743 (Version 7)
Quarter: 2013Q2

REPORT INFORMATION
  Report Type: Spontaneous
  Country: JP (occurrence: JP)
  Receive Date: 20120830
  Receipt Date: 20130430
  Transmission Date: 20140414
  Serious: Yes (Death, Life-Threatening)
  Sender: FDA-Public Use
  Company Number: JP-ABBOTT-12P-087-0973273-00

PATIENT
  Age: 64 Year
  Sex: Male
  Weight: 78 kg

DRUGS (10)
  1. HUMIRA [Suspect]
     Indication: PSORIASIS
     Route: 058
     Dates: start: 20100729, end: 20100729
  2. HUMIRA [Suspect]
     Dates: start: 20100812, end: 20110127
  3. HUMIRA [Suspect]
     Dates: start: 20110127, end: 20120809
  4. BISOPROLOL FUMARATE [Suspect]
     Indication: PRODUCT USED FOR UNKNOWN INDICATION
     Dates: start: 20120809, end: 20120815
  5. PREDNISOLONE [Concomitant]
     Indication: PSORIASIS
     Dosage: 3 - 5 MG/DAY
     Route: 048
  6. PREDNISOLONE [Concomitant]
     Dates: start: 20080304, end: 20100715
  7. ETHYL ICOSAPENTATE [Concomitant]
     Indication: HYPERLIPIDAEMIA
     Route: 048
     Dates: start: 20081127, end: 20100715
  8. OLOPATADINE HYDROCHLORIDE [Concomitant]
     Indication: PSORIASIS
     Route: 048
     Dates: start: 20080918, end: 20101021
  9. ISONIAZID [Concomitant]
     Indication: ANTIBIOTIC PROPHYLAXIS
     Route: 048
     Dates: start: 20100610, end: 20101230
  10. DIFLUPREDNATE [Concomitant]
     Indication: PSORIASIS
     Dosage: 1 - 2 TIMES/DAY
     Route: 061
     Dates: start: 20080304

REACTIONS (15)
  - Hepatic failure [Fatal]
  - Septic shock [Fatal]
  - Cholestasis [Unknown]
  - Palpitations [Unknown]
  - Pyrexia [Unknown]
  - Inflammation [Unknown]
  - Platelet count decreased [Unknown]
  - Back pain [Unknown]
  - Malaise [Unknown]
  - Respiratory disorder [Unknown]
  - Bacterial infection [Unknown]
  - Cholangitis [Unknown]
  - Neutrophil count abnormal [Unknown]
  - General physical health deterioration [Unknown]
  - Renal impairment [Unknown]
